FAERS Safety Report 18328738 (Version 1)
Quarter: 2020Q3

REPORT INFORMATION
  Report Type: Spontaneous
  Country: US (occurrence: US)
  Receive Date: 20200929
  Receipt Date: 20200929
  Transmission Date: 20201103
  Serious: Yes (Disabling)
  Sender: FDA-Public Use
  Company Number: None

PATIENT

DRUGS (2)
  1. RYTARY [Suspect]
     Active Substance: CARBIDOPA\LEVODOPA
     Indication: PARKINSON^S DISEASE
     Dosage: ?          OTHER STRENGTH:48.75MG?195MG;QUANTITY:4 DF DOSAGE FORM;?
     Route: 048
     Dates: start: 20200527, end: 20200531
  2. SINEMET [Suspect]
     Active Substance: CARBIDOPA\LEVODOPA

REACTIONS (17)
  - Pain in extremity [None]
  - Somnolence [None]
  - Crying [None]
  - Inadequate analgesia [None]
  - Gait disturbance [None]
  - Mood swings [None]
  - Fatigue [None]
  - Tremor [None]
  - Asthenia [None]
  - Drug ineffective [None]
  - Dysphagia [None]
  - Musculoskeletal stiffness [None]
  - Speech disorder [None]
  - Nausea [None]
  - Depression [None]
  - Dyskinesia [None]
  - Muscle tightness [None]

NARRATIVE: CASE EVENT DATE: 20200526
